FAERS Safety Report 7043342-6 (Version None)
Quarter: 2010Q3

REPORT INFORMATION
  Report Type: 
  Country: None (occurrence: None)
  Receive Date: 20100929
  Receipt Date: 20100802
  Transmission Date: 20110219
  Serious: No
  Sender: FDA-Public Use
  Company Number: US-WYE-H16760610

PATIENT
  Age: 67 Year
  Sex: Male
  Weight: 93.07 kg

DRUGS (2)
  1. PRISTIQ [Suspect]
     Indication: ANXIETY
     Dosage: 50 MG 1X PER 1 DAY
     Dates: start: 20100728
  2. PRISTIQ [Suspect]
     Indication: VISION BLURRED
     Dosage: 50 MG 1X PER 1 DAY
     Dates: start: 20100728

REACTIONS (1)
  - DRUG INEFFECTIVE [None]
